FAERS Safety Report 25002719 (Version 2)
Quarter: 2025Q2

REPORT INFORMATION
  Report Type: Report from Study
  Country: GB (occurrence: GB)
  Receive Date: 20250224
  Receipt Date: 20250402
  Transmission Date: 20250717
  Serious: Yes (Hospitalization, Other)
  Sender: SAMSUNG BIOEPIS
  Company Number: GB-SAMSUNG BIOEPIS-SB-2025-06450

PATIENT
  Age: 70 Year
  Sex: Female

DRUGS (1)
  1. ETANERCEPT [Suspect]
     Active Substance: ETANERCEPT
     Indication: Rheumatoid arthritis
     Route: 058

REACTIONS (6)
  - Oxygen saturation decreased [Unknown]
  - Hypercapnia [Unknown]
  - Influenza [Unknown]
  - Hallucination [Unknown]
  - Respiratory syncytial virus infection [Unknown]
  - Respiratory failure [Unknown]
